FAERS Safety Report 6521541-7 (Version None)
Quarter: 2009Q4

REPORT INFORMATION
  Report Type: 
  Country: None (occurrence: None)
  Receive Date: 20091214
  Receipt Date: 20090715
  Transmission Date: 20100525
  Serious: Yes (Other)
  Sender: FDA-Public Use
  Company Number: 644450

PATIENT
  Weight: 158.5 kg

DRUGS (2)
  1. PEGASYS [Suspect]
     Indication: HEPATITIS C
  2. PEGASYS [Suspect]
     Indication: HIV INFECTION

REACTIONS (1)
  - WEIGHT DECREASED [None]
